FAERS Safety Report 6013027-3 (Version None)
Quarter: 2008Q4

REPORT INFORMATION
  Report Type: 
  Country: None (occurrence: None)
  Receive Date: 20081219
  Receipt Date: 20081209
  Transmission Date: 20090506
  Serious: Yes (Death, Life-Threatening)
  Sender: FDA-Public Use
  Company Number: JP-PFIZER INC-2008083225

PATIENT

DRUGS (3)
  1. SUNITINIB MALATE [Suspect]
     Indication: RENAL CELL CARCINOMA
     Dosage: 50 MG, 1X/DAY
     Dates: start: 20080718, end: 20080731
  2. ALOSITOL [Concomitant]
     Dates: start: 20080725, end: 20080731
  3. CALCIUM POLYSTYRENE SULFONATE [Concomitant]
     Dates: start: 20080725, end: 20080731

REACTIONS (5)
  - DISEASE PROGRESSION [None]
  - HYPERKALAEMIA [None]
  - MALIGNANT PLEURAL EFFUSION [None]
  - PLEURAL EFFUSION [None]
  - RENAL CELL CARCINOMA [None]
